FAERS Safety Report 12551934 (Version 5)
Quarter: 2017Q1

REPORT INFORMATION
  Report Type: Spontaneous
  Country: JP (occurrence: JP)
  Receive Date: 20160713
  Receipt Date: 20170201
  Transmission Date: 20170428
  Serious: Yes (Death)
  Sender: FDA-Public Use
  Company Number: JP-009507513-1607JPN003709

PATIENT
  Age: 81 Year
  Sex: Female
  Weight: 40 kg

DRUGS (3)
  1. DIAZOXIDE CAPSULES 25 MG MSD [Suspect]
     Active Substance: DIAZOXIDE
     Indication: INSULINOMA
     Dosage: 25 MG, TID
     Route: 048
     Dates: start: 20160609, end: 20160707
  2. ALDACTONE A [Concomitant]
     Active Substance: SPIRONOLACTONE
     Indication: HYPERTENSION
     Dosage: UNK
     Route: 048
  3. LASIX [Concomitant]
     Active Substance: FUROSEMIDE
     Indication: HYPERTENSION
     Dosage: UNK
     Route: 065

REACTIONS (1)
  - Renal disorder [Fatal]

NARRATIVE: CASE EVENT DATE: 20160707
